FAERS Safety Report 24165719 (Version 1)
Quarter: 2024Q3

REPORT INFORMATION
  Report Type: Spontaneous
  Country: US (occurrence: US)
  Receive Date: 20240802
  Receipt Date: 20240802
  Transmission Date: 20241017
  Serious: No
  Sender: ACCORD
  Company Number: US-Accord-370404

PATIENT
  Sex: Female

DRUGS (4)
  1. DOCETAXEL [Suspect]
     Active Substance: DOCETAXEL\DOCETAXEL ANHYDROUS
     Indication: Breast cancer
     Dosage: NUMBER OF CYCLES: 5, 125 MG ON 13/5/2016, ON 03/06/2016, 24/06/2016
     Dates: start: 20160513, end: 20160826
  2. CARBOPLATIN [Suspect]
     Active Substance: CARBOPLATIN
     Indication: Breast cancer
     Dosage: NUMBER OF CYCLES: 5, 125 MG ON 13/5/2016, ON 03/06/2016, 24/06/2016
     Dates: start: 20160513, end: 20160826
  3. HERCEPTIN [Suspect]
     Active Substance: TRASTUZUMAB
     Indication: Breast cancer
     Dosage: NUMBER OF CYCLES: 5, 125 MG ON 13/5/2016, ON 03/06/2016, 24/06/2016
     Dates: start: 20160513, end: 20160826
  4. PERJETA [Suspect]
     Active Substance: PERTUZUMAB
     Indication: Breast cancer
     Dosage: NUMBER OF CYCLES: 5, 125 MG ON 13/5/2016, ON 03/06/2016, 24/06/2016
     Dates: start: 20160513, end: 20160826

REACTIONS (1)
  - Dacryostenosis acquired [Not Recovered/Not Resolved]

NARRATIVE: CASE EVENT DATE: 20160101
